FAERS Safety Report 6919266-9 (Version None)
Quarter: 2010Q3

REPORT INFORMATION
  Report Type: 
  Country: None (occurrence: None)
  Receive Date: 20100811
  Receipt Date: 20100802
  Transmission Date: 20110219
  Serious: Yes (Death, Hospitalization)
  Sender: FDA-Public Use
  Company Number: US-TEVA-241605USA

PATIENT
  Sex: Female

DRUGS (9)
  1. NOREPINEPHRINE BITARTRATE 1 MG BASE/ML [Suspect]
     Indication: BLOOD PRESSURE MANAGEMENT
     Dosage: 0.01 TO 0.05 MG/KG/MIN
     Route: 042
  2. DOBUTAMINE HCL [Concomitant]
  3. DOPAMINE HCL [Concomitant]
  4. EPINEPHRINE [Concomitant]
  5. VASOPRESSIN [Concomitant]
  6. FENTANYL [Concomitant]
  7. POTASSIUM CHLORIDE [Concomitant]
  8. SODIUM BICARBONATE [Concomitant]
  9. MILRINONE [Concomitant]

REACTIONS (1)
  - DEVICE MALFUNCTION [None]
